FAERS Safety Report 8886863 (Version 4)
Quarter: 2013Q1

REPORT INFORMATION
  Report Type: Spontaneous
  Country: JP (occurrence: JP)
  Receive Date: 20121105
  Receipt Date: 20130129
  Transmission Date: 20140127
  Serious: Yes (Other)
  Sender: FDA-Public Use
  Company Number: JP-PFIZER INC-2012270131

PATIENT
  Age: 30 Year
  Sex: Female

DRUGS (2)
  1. ANGE-28 [Suspect]
     Indication: PREMENSTRUAL SYNDROME
     Dosage: 1 DF, UNK
     Route: 048
     Dates: start: 20120221, end: 20121021
  2. PLANOVAR [Concomitant]
     Indication: PREMENSTRUAL SYNDROME
     Dosage: UNK
     Route: 048

REACTIONS (1)
  - Liver function test abnormal [Unknown]
